FAERS Safety Report 5638895-6 (Version None)
Quarter: 2008Q1

REPORT INFORMATION
  Report Type: 
  Country: None (occurrence: None)
  Receive Date: 20080226
  Receipt Date: 20080220
  Transmission Date: 20080703
  Serious: Yes (Hospitalization)
  Sender: FDA-Public Use
  Company Number: DE-ROCHE-546760

PATIENT
  Age: 42 Year
  Sex: Male
  Weight: 68 kg

DRUGS (1)
  1. PEG-INTERFERON A-2A (RO 25-8310) [Suspect]
     Route: 058
     Dates: start: 20080201

REACTIONS (2)
  - PYREXIA [None]
  - REFLUX OESOPHAGITIS [None]
